FAERS Safety Report 11042735 (Version 1)
Quarter: 2015Q2

REPORT INFORMATION
  Report Type: Spontaneous
  Country: US (occurrence: US)
  Receive Date: 20150416
  Receipt Date: 20150416
  Transmission Date: 20150821
  Serious: Yes (Other)
  Sender: FDA-Public Use
  Company Number: US-AMGEN-USASP2015034907

PATIENT
  Age: 60 Year
  Sex: Female

DRUGS (1)
  1. PROLIA [Suspect]
     Active Substance: DENOSUMAB
     Indication: OSTEOPOROSIS
     Dosage: UNK
     Route: 065
     Dates: start: 201408

REACTIONS (5)
  - Hyperparathyroidism [Unknown]
  - Nephropathy [Unknown]
  - Bone density decreased [Unknown]
  - Endodontic procedure [Unknown]
  - Gingival graft [Unknown]
